FAERS Safety Report 4514735-3 (Version None)
Quarter: 2004Q4

REPORT INFORMATION
  Report Type: 
  Country: None (occurrence: None)
  Receive Date: 20041124
  Receipt Date: 20041124
  Transmission Date: 20050328
  Serious: Yes (Hospitalization)
  Sender: FDA-Public Use
  Company Number: None

PATIENT
  Age: 82 Year
  Sex: Female

DRUGS (5)
  1. LIPITOR [Suspect]
     Indication: LOW DENSITY LIPOPROTEIN INCREASED
     Dosage: 40 MG PO DAILY
     Route: 048
     Dates: start: 20040804, end: 20041103
  2. SYNTHROID [Concomitant]
  3. HYZAAR [Concomitant]
  4. METOPROLOL [Concomitant]
  5. DEPAKOTE [Concomitant]

REACTIONS (7)
  - ABNORMAL BEHAVIOUR [None]
  - GENERAL PHYSICAL HEALTH DETERIORATION [None]
  - HEADACHE [None]
  - MENTAL STATUS CHANGES [None]
  - MYALGIA [None]
  - NAUSEA [None]
  - SPEECH DISORDER [None]
